FAERS Safety Report 6112738-9 (Version None)
Quarter: 2009Q1

REPORT INFORMATION
  Report Type: 
  Country: None (occurrence: None)
  Receive Date: 20090310
  Receipt Date: 20090225
  Transmission Date: 20090719
  Serious: Yes (Other)
  Sender: FDA-Public Use
  Company Number: 1000005019

PATIENT
  Sex: 0

DRUGS (1)
  1. ESCITALOPRAM [Suspect]
     Dosage: ORAL
     Route: 048
     Dates: start: 20061201

REACTIONS (3)
  - DEPRESSION [None]
  - MALAISE [None]
  - SELF INJURIOUS BEHAVIOUR [None]
